FAERS Safety Report 5720952-7 (Version None)
Quarter: 2008Q2

REPORT INFORMATION
  Report Type: 
  Country: None (occurrence: None)
  Receive Date: 20080424
  Receipt Date: 20080417
  Transmission Date: 20081010
  Serious: Yes (Death, Other)
  Sender: FDA-Public Use
  Company Number: 2008US000182

PATIENT
  Age: 38 Year
  Sex: Male

DRUGS (6)
  1. MYCAMINE [Suspect]
     Indication: BRONCHOPULMONARY ASPERGILLOSIS
     Dosage: OTHER
     Dates: start: 20070101, end: 20070101
  2. MYCAMINE [Suspect]
     Indication: BRONCHOPULMONARY ASPERGILLOSIS
     Dosage: OTHER
     Dates: start: 20071231
  3. AMBISOME [Suspect]
     Indication: BRONCHOPULMONARY ASPERGILLOSIS
     Dosage: 5 MG/KG, UID/QD,
     Dates: start: 20071231, end: 20080106
  4. IMIPENEM (IMIPENEM) [Concomitant]
  5. VANCOMYCIN HYDROCHLORIDE [Concomitant]
  6. VORICONAZOLE (VORICONAZOLE) [Concomitant]

REACTIONS (6)
  - BLOOD CULTURE POSITIVE [None]
  - PARAINFLUENZAE VIRUS INFECTION [None]
  - PNEUMONIA FUNGAL [None]
  - SCROTAL PAIN [None]
  - SINUSITIS [None]
  - STAPHYLOCOCCAL INFECTION [None]
